FAERS Safety Report 8584102-4 (Version None)
Quarter: 2012Q3

REPORT INFORMATION
  Report Type: 
  Country: None (occurrence: None)
  Receive Date: 20120810
  Receipt Date: 20120723
  Transmission Date: 20120928
  Serious: No
  Sender: FDA-Public Use
  Company Number: US-009507513-2012SP036233

PATIENT

DRUGS (2)
  1. LORATADINE [Suspect]
     Indication: SEASONAL ALLERGY
  2. LORATADINE [Suspect]
     Indication: SINUS HEADACHE
     Dosage: UNK UNK, UNKNOWN
     Route: 048
     Dates: start: 20100101, end: 20120101

REACTIONS (3)
  - OVERDOSE [None]
  - THERAPEUTIC RESPONSE UNEXPECTED [None]
  - DRUG INEFFECTIVE FOR UNAPPROVED INDICATION [None]
